FAERS Safety Report 6016956-X (Version None)
Quarter: 2008Q4

REPORT INFORMATION
  Report Type: 
  Country: None (occurrence: None)
  Receive Date: 20081219
  Receipt Date: 20081205
  Transmission Date: 20090506
  Serious: Yes (Life-Threatening, Hospitalization, Other)
  Sender: FDA-Public Use
  Company Number: A-US2007-17785

PATIENT
  Age: 45 Year
  Sex: Female
  Weight: 80 kg

DRUGS (12)
  1. TRACLEER [Suspect]
     Indication: PULMONARY HYPERTENSION
     Dosage: 125 MG, BID, ORAL; 62.5 MG, BID, ORAL; 62.5 MG, BID, ORAL
     Route: 048
     Dates: start: 20070713, end: 20070701
  2. TRACLEER [Suspect]
     Indication: PULMONARY HYPERTENSION
     Dosage: 125 MG, BID, ORAL; 62.5 MG, BID, ORAL; 62.5 MG, BID, ORAL
     Route: 048
     Dates: start: 20080701, end: 20080801
  3. TRACLEER [Suspect]
     Indication: PULMONARY HYPERTENSION
     Dosage: 125 MG, BID, ORAL; 62.5 MG, BID, ORAL; 62.5 MG, BID, ORAL
     Route: 048
     Dates: start: 20080909, end: 20081016
  4. AZATHIOPRINE SODIUM [Suspect]
     Dates: start: 20080904, end: 20081030
  5. PILOCARPINE [Concomitant]
  6. DARVOCET [Concomitant]
  7. PLAQUENIL [Concomitant]
  8. ALENDRONATE SODIUM [Concomitant]
  9. CALCIUM CARBONATE W/VITAMIN D NOS (VITAMIN D NOS, CALCIUM CARBONATE) [Concomitant]
  10. NEXIUM [Concomitant]
  11. FOLIC ACID [Concomitant]
  12. NIFEDIPINE [Concomitant]

REACTIONS (40)
  - ABDOMINAL DISTENSION [None]
  - ALANINE AMINOTRANSFERASE INCREASED [None]
  - ASPARTATE AMINOTRANSFERASE INCREASED [None]
  - AUTOIMMUNE HEPATITIS [None]
  - BILIRUBIN CONJUGATED INCREASED [None]
  - BIOPSY LIVER ABNORMAL [None]
  - BLOOD ALKALINE PHOSPHATASE INCREASED [None]
  - BLOOD BILIRUBIN INCREASED [None]
  - CHOLECYSTITIS [None]
  - CHROMATURIA [None]
  - CONDITION AGGRAVATED [None]
  - DIARRHOEA [None]
  - FAECES DISCOLOURED [None]
  - FATIGUE [None]
  - FLATULENCE [None]
  - GALLBLADDER DISORDER [None]
  - HEART RATE IRREGULAR [None]
  - HEPATIC STEATOSIS [None]
  - HEPATITIS [None]
  - HEPATITIS ACUTE [None]
  - HEPATITIS CHRONIC ACTIVE [None]
  - HYPERGLYCAEMIA [None]
  - JAUNDICE [None]
  - LIPASE INCREASED [None]
  - LIVER DISORDER [None]
  - LIVER FUNCTION TEST ABNORMAL [None]
  - LIVER INJURY [None]
  - NAUSEA [None]
  - OEDEMA PERIPHERAL [None]
  - PAIN IN EXTREMITY [None]
  - PYREXIA [None]
  - RAYNAUD'S PHENOMENON [None]
  - SCLERODERMA [None]
  - SENSATION OF PRESSURE [None]
  - SKIN ULCER [None]
  - SWELLING FACE [None]
  - SYSTEMIC LUPUS ERYTHEMATOSUS [None]
  - URINARY TRACT DISORDER [None]
  - VOMITING [None]
  - WEIGHT INCREASED [None]
